FAERS Safety Report 5625994-8 (Version None)
Quarter: 2008Q1

REPORT INFORMATION
  Report Type: 
  Country: None (occurrence: None)
  Receive Date: 20080214
  Receipt Date: 20080207
  Transmission Date: 20080703
  Serious: Yes (Other)
  Sender: FDA-Public Use
  Company Number: PHBS2008BR01625

PATIENT
  Age: 26 Year
  Sex: Female
  Weight: 53 kg

DRUGS (5)
  1. CATAFLAM [Suspect]
     Indication: PAIN
     Dosage: 150 MG/DAY
     Route: 048
     Dates: start: 20080117
  2. PARACETAMOL [Suspect]
     Indication: TOOTHACHE
     Dosage: 500 MG, Q12H
     Route: 048
     Dates: start: 20080117
  3. PARACETAMOL [Suspect]
     Dosage: 200 MG, Q6H
     Route: 048
     Dates: start: 20080117, end: 20080117
  4. AMOXICILLIN [Suspect]
     Dosage: 1500 MG/DAY
     Route: 048
     Dates: start: 20080117
  5. PREXIGE [Suspect]
     Indication: OSTEITIS
     Dosage: 400 MG, Q12H
     Route: 048

REACTIONS (13)
  - ARTHRALGIA [None]
  - BURNING SENSATION [None]
  - FORMICATION [None]
  - HYPOAESTHESIA [None]
  - LIMB DISCOMFORT [None]
  - LIVER DISORDER [None]
  - MUSCULAR WEAKNESS [None]
  - PAIN [None]
  - PAIN IN EXTREMITY [None]
  - PERIPHERAL COLDNESS [None]
  - PYREXIA [None]
  - SENSATION OF HEAVINESS [None]
  - TEMPOROMANDIBULAR JOINT SYNDROME [None]
